FAERS Safety Report 21835439 (Version 11)
Quarter: 2024Q1

REPORT INFORMATION
  Report Type: Spontaneous
  Country: PT (occurrence: PT)
  Receive Date: 20230109
  Receipt Date: 20240329
  Transmission Date: 20240409
  Serious: Yes (Other)
  Sender: FDA-Public Use
  Company Number: PT-ROCHE-3252397

PATIENT
  Age: 76 Year
  Sex: Female

DRUGS (77)
  1. ANASTROZOLE [Suspect]
     Active Substance: ANASTROZOLE
     Indication: HER2 positive breast cancer
     Dosage: 4 MILLIGRAM, DAILY
     Route: 048
     Dates: start: 201606
  2. CAPECITABINE [Suspect]
     Active Substance: CAPECITABINE
     Indication: HER2 positive breast cancer
     Dosage: 1800 MILLIGRAM, TWO TIMES A DAY
     Route: 048
     Dates: start: 20200211, end: 20200303
  3. CAPECITABINE [Suspect]
     Active Substance: CAPECITABINE
     Dosage: 1300 MILLIGRAM, TWO TIMES A DAY
     Route: 048
     Dates: start: 20200331, end: 20200602
  4. CAPECITABINE [Suspect]
     Active Substance: CAPECITABINE
     Dosage: 900 MILLIGRAM, TWO TIMES A DAY
     Route: 048
     Dates: start: 20200616, end: 20210831
  5. DOCETAXEL [Suspect]
     Active Substance: DOCETAXEL\DOCETAXEL ANHYDROUS
     Indication: Breast cancer metastatic
     Dosage: 75 MILLIGRAM, (EVERY 3 WEEK)
     Route: 042
     Dates: start: 20170227, end: 20170529
  6. DOCETAXEL [Suspect]
     Active Substance: DOCETAXEL\DOCETAXEL ANHYDROUS
     Indication: HER2 positive breast cancer
  7. TAMOXIFEN [Suspect]
     Active Substance: TAMOXIFEN
     Indication: HER2 positive breast cancer
     Dosage: 20 MILLIGRAM, ONCE A DAY
     Route: 048
     Dates: start: 20170609
  8. ZOLEDRONIC ACID [Suspect]
     Active Substance: ZOLEDRONIC ACID
     Indication: Breast cancer metastatic
     Dosage: 4 MILLIGRAM (EVERY 4 WEEK)
     Route: 042
     Dates: start: 20170227
  9. ZOLEDRONIC ACID [Suspect]
     Active Substance: ZOLEDRONIC ACID
     Indication: HER2 positive breast cancer
  10. NOLVADEX [Suspect]
     Active Substance: TAMOXIFEN CITRATE
     Indication: Breast cancer metastatic
     Dosage: 20 MILLIGRAM, ONCE A DAY
     Route: 048
     Dates: start: 20170629
  11. NOLVADEX [Suspect]
     Active Substance: TAMOXIFEN CITRATE
     Indication: HER2 positive breast cancer
  12. PERTUZUMAB [Suspect]
     Active Substance: PERTUZUMAB
     Indication: Breast cancer metastatic
     Dosage: 600 MILLILITER
     Route: 042
     Dates: start: 20171108, end: 20180813
  13. PERTUZUMAB [Suspect]
     Active Substance: PERTUZUMAB
     Indication: HER2 positive breast cancer
     Dosage: 600 MILLILITER
     Route: 042
     Dates: start: 20170227, end: 20170927
  14. PERTUZUMAB [Suspect]
     Active Substance: PERTUZUMAB
     Dosage: 1800 MILLILITER
     Route: 042
     Dates: start: 20170227, end: 20170227
  15. PERTUZUMAB [Suspect]
     Active Substance: PERTUZUMAB
     Dosage: 1800 MILLILITER
     Route: 042
     Dates: start: 20171108, end: 20180813
  16. ENHERTU [Suspect]
     Active Substance: FAM-TRASTUZUMAB DERUXTECAN-NXKI
     Indication: Breast cancer metastatic
     Dosage: 5.4 MILLIGRAM/KILOGRAM, 3 WEEK
     Route: 042
     Dates: start: 20211013
  17. TYKERB [Suspect]
     Active Substance: LAPATINIB DITOSYLATE
     Indication: Breast cancer metastatic
     Dosage: 1250 MILLIGRAM, ONCE A DAY
     Route: 048
     Dates: start: 20200211, end: 20200303
  18. TYKERB [Suspect]
     Active Substance: LAPATINIB DITOSYLATE
     Indication: HER2 positive breast cancer
     Dosage: 1000 MILLIGRAM, ONCE A DAY
     Route: 048
     Dates: start: 20200331, end: 20200331
  19. PERJETA [Suspect]
     Active Substance: PERTUZUMAB
     Indication: Breast cancer metastatic
     Dosage: 600 MILLILITER (EVERY 3 WEEK)
     Route: 042
     Dates: start: 20171108, end: 20180813
  20. PERJETA [Suspect]
     Active Substance: PERTUZUMAB
     Indication: HER2 positive breast cancer
     Dosage: 600 MILLIGRAM (EVERY 3 WEEK)
     Route: 042
     Dates: start: 20170227, end: 20170927
  21. PERJETA [Suspect]
     Active Substance: PERTUZUMAB
     Dosage: 600 MILLIGRAM (EVERY 3 WEEK)
     Route: 065
     Dates: start: 20171108, end: 20180813
  22. ARIMIDEX [Suspect]
     Active Substance: ANASTROZOLE
     Indication: HER2 positive breast cancer
     Dosage: 4 MILLIGRAM, ONCE A DAY
     Route: 048
     Dates: start: 201606, end: 201610
  23. HERCEPTIN [Suspect]
     Active Substance: TRASTUZUMAB
     Indication: Breast cancer metastatic
     Dosage: 600 MILLIGRAM (EVERY 3 WEEK)
     Route: 042
     Dates: start: 20170227, end: 20170227
  24. HERCEPTIN [Suspect]
     Active Substance: TRASTUZUMAB
     Indication: HER2 positive breast cancer
     Dosage: 600 MILLIGRAM (EVERY 3 WEEK)
     Route: 042
     Dates: start: 20171108, end: 20180903
  25. HERCEPTIN [Suspect]
     Active Substance: TRASTUZUMAB
     Dosage: 5.4 MILLIGRAM/KILOGRAM, 3 WEEK
     Route: 065
     Dates: start: 20211013
  26. HERCEPTIN [Suspect]
     Active Substance: TRASTUZUMAB
     Dosage: 600 MILLIGRAM (EVERY 3 WEEK)
     Route: 042
     Dates: start: 20221109
  27. KADCYLA [Suspect]
     Active Substance: ADO-TRASTUZUMAB EMTANSINE
     Indication: Breast cancer metastatic
     Dosage: 3.6 MICROGRAM/KILOGRAM, 3.6 UG, TIW (CUMULATIVE DOSE TO FIRST REACTION: 64.8 UG)
     Dates: start: 20180917, end: 202001
  28. KADCYLA [Suspect]
     Active Substance: ADO-TRASTUZUMAB EMTANSINE
     Indication: HER2 positive breast cancer
  29. LAPATINIB [Suspect]
     Active Substance: LAPATINIB
     Indication: HER2 positive breast cancer
     Dosage: 1250 MILLIGRAM, ONCE A DAY
     Route: 065
     Dates: start: 20200211, end: 20200303
  30. LAPATINIB [Suspect]
     Active Substance: LAPATINIB
     Dosage: 1000 MILLIGRAM, ONCE A DAY
     Route: 065
     Dates: start: 20200331
  31. TRASTUZUMAB [Suspect]
     Active Substance: TRASTUZUMAB
     Indication: HER2 positive breast cancer
     Dosage: 600 MILLIGRAM, EVERY 3 WEEK
     Route: 042
     Dates: start: 20170227, end: 20170227
  32. TRASTUZUMAB [Suspect]
     Active Substance: TRASTUZUMAB
     Dosage: 600 MILLIGRAM, EVERY 3 WEEK
     Route: 042
     Dates: start: 20171108
  33. ADO-TRASTUZUMAB EMTANSINE [Suspect]
     Active Substance: ADO-TRASTUZUMAB EMTANSINE
     Indication: Breast cancer metastatic
     Dosage: 3.6 MICROGRAM (EVERY 3 WEEK) 3.6 UG, TIW (CUMULATIVE DOSE TO FIRST REACTION: 64.8 UG)
     Route: 042
     Dates: start: 20180917, end: 202001
  34. ADO-TRASTUZUMAB EMTANSINE [Suspect]
     Active Substance: ADO-TRASTUZUMAB EMTANSINE
     Indication: HER2 positive breast cancer
     Dosage: 4 MICROGRAM, (4 UG, Q3W)
     Route: 042
     Dates: start: 20180917, end: 202001
  35. ADO-TRASTUZUMAB EMTANSINE [Suspect]
     Active Substance: ADO-TRASTUZUMAB EMTANSINE
     Dosage: 10.8 MICROGRAM, (3.6 UG, TIW (CUMULATIVE DOSE TO FIRST REACTION: 64.8 UG)
     Route: 042
     Dates: start: 20180917, end: 202001
  36. ADO-TRASTUZUMAB EMTANSINE [Suspect]
     Active Substance: ADO-TRASTUZUMAB EMTANSINE
     Dosage: 12 MICROGRAM, (4 UG, Q3W)
     Route: 042
     Dates: start: 20180917, end: 202001
  37. FAM-TRASTUZUMAB DERUXTECAN-NXKI [Suspect]
     Active Substance: FAM-TRASTUZUMAB DERUXTECAN-NXKI
     Indication: HER2 positive breast cancer
     Dosage: 4.4 MILLIGRAM/KILOGRAM,(3 WEEKS)
     Route: 042
     Dates: start: 20200111, end: 20220217
  38. FAM-TRASTUZUMAB DERUXTECAN-NXKI [Suspect]
     Active Substance: FAM-TRASTUZUMAB DERUXTECAN-NXKI
     Dosage: 3.2 MILLIGRAM/KILOGRAM, (3 WEEKS)
     Route: 042
     Dates: start: 20220302, end: 20220421
  39. FAM-TRASTUZUMAB DERUXTECAN-NXKI [Suspect]
     Active Substance: FAM-TRASTUZUMAB DERUXTECAN-NXKI
     Dosage: 5.4 MILLIGRAM/KILOGRAM, (3 WEEKS)
     Route: 042
     Dates: start: 20221013, end: 20221230
  40. TAXOTERE [Suspect]
     Active Substance: DOCETAXEL
     Indication: Breast cancer metastatic
     Dosage: 75 MILLIGRAM (EVERY 3 WEEK)
     Route: 042
     Dates: start: 20170227
  41. TAXOTERE [Suspect]
     Active Substance: DOCETAXEL
     Indication: HER2 positive breast cancer
  42. XELODA [Suspect]
     Active Substance: CAPECITABINE
     Indication: Breast cancer metastatic
     Dosage: 1800 MILLIGRAM, TWO TIMES A DAY
     Route: 048
     Dates: start: 20200211, end: 20200303
  43. XELODA [Suspect]
     Active Substance: CAPECITABINE
     Indication: HER2 positive breast cancer
     Dosage: 1300 MILLIGRAM, TWO TIMES A DAY
     Route: 048
     Dates: start: 20200331, end: 20200602
  44. XELODA [Suspect]
     Active Substance: CAPECITABINE
     Dosage: 900 MILLIGRAM, TWO TIMES A DAY
     Route: 048
     Dates: start: 20200616, end: 20210831
  45. AMOXICILLIN [Concomitant]
     Active Substance: AMOXICILLIN
     Indication: Product used for unknown indication
     Dosage: UNK
     Route: 065
     Dates: start: 202101
  46. ARCOXIA [Concomitant]
     Active Substance: ETORICOXIB
     Indication: Product used for unknown indication
     Dosage: UNK
     Route: 065
  47. BACTRIM [Concomitant]
     Active Substance: SULFAMETHOXAZOLE\TRIMETHOPRIM
     Indication: Urinary tract infection
     Dosage: UNK
     Route: 065
     Dates: start: 201802, end: 201803
  48. BILASTINE [Concomitant]
     Active Substance: BILASTINE
     Indication: Product used for unknown indication
     Dosage: UNK
     Route: 065
     Dates: start: 20180418
  49. BISOPROLOL [Concomitant]
     Active Substance: BISOPROLOL\BISOPROLOL FUMARATE
     Indication: Product used for unknown indication
     Dosage: 2.5 MILLIGRAM, ONCE A DAY
     Route: 065
     Dates: start: 2016
  50. BISOPROLOL [Concomitant]
     Active Substance: BISOPROLOL\BISOPROLOL FUMARATE
     Dosage: 3 MILLIGRAM, ONCE A DAY
     Route: 065
     Dates: start: 2016
  51. CALCIUM\VITAMIN D [Concomitant]
     Active Substance: CALCIUM\VITAMIN D
     Indication: Product used for unknown indication
     Dosage: UNK
     Route: 065
  52. Codipront [Concomitant]
     Indication: Cough
     Dosage: UNK
     Route: 065
  53. ESOMEPRAZOLE [Concomitant]
     Active Substance: ESOMEPRAZOLE
     Indication: Product used for unknown indication
     Dosage: UNK UNK, ONCE A DAY
     Route: 065
     Dates: start: 20200324
  54. FLUOXETINE HYDROCHLORIDE [Concomitant]
     Active Substance: FLUOXETINE HYDROCHLORIDE
     Indication: Depression
     Dosage: UNK
     Route: 065
     Dates: start: 20170926
  55. Fosfomicina [Concomitant]
     Indication: Urinary tract infection
     Dosage: UNK
     Route: 065
     Dates: start: 20180418
  56. Fucidine [Concomitant]
     Indication: Product used for unknown indication
     Dosage: UNK
     Route: 065
     Dates: start: 20200110
  57. LOPERAMIDE [Concomitant]
     Active Substance: LOPERAMIDE
     Indication: Diarrhoea
     Dosage: UNK
     Route: 065
  58. POLYETHYLENE GLYCOLS [Concomitant]
     Active Substance: POLYETHYLENE GLYCOLS
     Indication: Constipation
     Dosage: UNK UNK, ONCE A DAY
     Route: 065
     Dates: start: 20211116
  59. Magnesio [Concomitant]
     Indication: Hypomagnesaemia
     Dosage: UNK
     Route: 065
     Dates: start: 20180220
  60. Magnesio [Concomitant]
     Dosage: UNK
     Route: 065
     Dates: start: 20211116
  61. METFORMIN [Concomitant]
     Active Substance: METFORMIN HYDROCHLORIDE
     Indication: Product used for unknown indication
     Dosage: 850 MILLIGRAM, TWO TIMES A DAY
     Route: 065
     Dates: start: 2016
  62. METFORMIN [Concomitant]
     Active Substance: METFORMIN HYDROCHLORIDE
     Dosage: 800 MILLIGRAM, ONCE A DAY
     Route: 065
     Dates: start: 2016
  63. MECLOPRINA [Concomitant]
     Indication: Product used for unknown indication
     Dosage: UNK
     Route: 065
  64. Nolotil [Concomitant]
     Indication: Product used for unknown indication
     Dosage: UNK
     Route: 065
  65. OFLOXACIN [Concomitant]
     Active Substance: OFLOXACIN
     Indication: Product used for unknown indication
     Dosage: 200 MILLIGRAM
     Route: 065
     Dates: start: 20170529
  66. OMEPRAZOLE [Concomitant]
     Active Substance: OMEPRAZOLE
     Indication: Product used for unknown indication
     Dosage: 20 MILLIGRAM, ONCE A DAY
     Route: 065
     Dates: start: 2016
  67. ACETAMINOPHEN [Concomitant]
     Active Substance: ACETAMINOPHEN
     Indication: Pain
     Dosage: UNK
     Route: 065
     Dates: start: 20190126
  68. POTASSIUM [Concomitant]
     Active Substance: POTASSIUM
     Indication: Hypokalaemia
     Dosage: UNK
     Route: 065
  69. TRAMADOL [Concomitant]
     Active Substance: TRAMADOL\TRAMADOL HYDROCHLORIDE
     Indication: Pain
     Dosage: UNK
     Route: 065
  70. VALACYCLOVIR HYDROCHLORIDE [Concomitant]
     Active Substance: VALACYCLOVIR HYDROCHLORIDE
     Indication: Product used for unknown indication
     Dosage: UNK
     Route: 065
     Dates: start: 20180328
  71. ETHYL LOFLAZEPATE [Concomitant]
     Active Substance: ETHYL LOFLAZEPATE
     Indication: Product used for unknown indication
     Dosage: 40 MILLIGRAM
     Route: 065
     Dates: start: 2016
  72. XARELTO [Concomitant]
     Active Substance: RIVAROXABAN
     Indication: Product used for unknown indication
     Dosage: 20 MILLIGRAM, ONCE A DAY
     Route: 065
     Dates: start: 20161228
  73. ZALDIAR [Concomitant]
     Active Substance: ACETAMINOPHEN\TRAMADOL HYDROCHLORIDE
     Indication: Product used for unknown indication
     Dosage: UNK
     Route: 065
     Dates: start: 20190326
  74. SIMVASTATIN [Concomitant]
     Active Substance: SIMVASTATIN
     Indication: Product used for unknown indication
     Dosage: UNK (ONGOING = CHECKED)
     Route: 065
     Dates: start: 20160615
  75. ZOLEDRONIC ACID [Concomitant]
     Active Substance: ZOLEDRONIC ACID
     Indication: Product used for unknown indication
     Dosage: UNK, (ONGOING = CHECKED)
     Route: 065
     Dates: start: 20170227
  76. MAGNESIUM [Concomitant]
     Active Substance: MAGNESIUM
     Indication: Hypomagnesaemia
     Dosage: UNK
     Route: 065
     Dates: start: 20180220
  77. METOCLOPRAMIDE [Concomitant]
     Active Substance: METOCLOPRAMIDE
     Indication: Product used for unknown indication
     Dosage: UNK
     Route: 065

REACTIONS (3)
  - Pneumonitis [Recovered/Resolved]
  - Neutropenia [Recovered/Resolved]
  - Anaemia [Recovered/Resolved]

NARRATIVE: CASE EVENT DATE: 20211223
